FAERS Safety Report 9246370 (Version 1)
Quarter: 2013Q2

REPORT INFORMATION
  Report Type: Report from Study
  Country: US (occurrence: US)
  Receive Date: 20130422
  Receipt Date: 20130422
  Transmission Date: 20140414
  Serious: Yes (Hospitalization)
  Sender: FDA-Public Use
  Company Number: US-US-EMD SERONO, INC.-7205818

PATIENT
  Age: 58 Year
  Sex: Female

DRUGS (3)
  1. REBIF [Suspect]
     Indication: MULTIPLE SCLEROSIS
     Route: 058
     Dates: start: 20101015
  2. ALEVE                              /00256202/ [Concomitant]
     Indication: ARTHRITIS
  3. OMEPRAZOLE [Concomitant]
     Indication: GASTROOESOPHAGEAL REFLUX DISEASE

REACTIONS (10)
  - Vomiting [Recovering/Resolving]
  - Dehydration [Recovering/Resolving]
  - Haematemesis [Recovering/Resolving]
  - Abdominal pain upper [Recovering/Resolving]
  - Nausea [Recovering/Resolving]
  - Sciatica [Unknown]
  - Asthenia [Recovering/Resolving]
  - Back pain [Unknown]
  - Fatigue [Recovering/Resolving]
  - Injection site erythema [Unknown]
